FAERS Safety Report 4658684-9 (Version None)
Quarter: 2005Q2

REPORT INFORMATION
  Report Type: 
  Country: None (occurrence: None)
  Receive Date: 20050509
  Receipt Date: 20050427
  Transmission Date: 20051028
  Serious: Yes (Hospitalization)
  Sender: FDA-Public Use
  Company Number: ZONI002131

PATIENT
  Age: 74 Year
  Sex: Male

DRUGS (7)
  1. EXCEGRAN (ZONISAMIDE) [Suspect]
     Indication: EPILEPSY
     Dosage: 200 MG, 1 IN 1 D, ORAL
     Route: 048
     Dates: start: 20050218, end: 20050313
  2. TAMIFLU [Concomitant]
  3. LANDEL (EFONIDIPINE HYDROCHLORIDE) [Concomitant]
  4. UBRETID (DISTIGMINE BROMIDE) [Concomitant]
  5. SUCRALFATE [Concomitant]
  6. EBRANTIL (URAPIDIL) [Concomitant]
  7. KAKKON-TO (KAKKON-TO) [Concomitant]

REACTIONS (5)
  - CONVULSION [None]
  - DRUG HYPERSENSITIVITY [None]
  - INFLUENZA [None]
  - LYMPHOCYTE MORPHOLOGY ABNORMAL [None]
  - STEVENS-JOHNSON SYNDROME [None]
